FAERS Safety Report 9140432 (Version 1)
Quarter: 2013Q1

REPORT INFORMATION
  Report Type: Spontaneous
  Country: US (occurrence: US)
  Receive Date: 20130305
  Receipt Date: 20130305
  Transmission Date: 20140127
  Serious: Yes (Other)
  Sender: FDA-Public Use
  Company Number: US-TEVA-388540USA

PATIENT
  Age: 52 Year
  Sex: Female

DRUGS (5)
  1. NUVIGIL [Suspect]
     Indication: NARCOLEPSY
     Route: 048
     Dates: start: 20130219, end: 20130224
  2. NUVIGIL [Suspect]
     Indication: FIBROMYALGIA
  3. RAMIPRIL [Concomitant]
     Indication: HYPERTENSION
  4. MULTIVITAMIN [Concomitant]
  5. AMBIEN [Concomitant]
     Indication: INSOMNIA
     Dosage: PRN
     Route: 048

REACTIONS (9)
  - Rash erythematous [Not Recovered/Not Resolved]
  - Urticaria [Not Recovered/Not Resolved]
  - Pruritus [Not Recovered/Not Resolved]
  - Skin burning sensation [Not Recovered/Not Resolved]
  - Stomatitis [Not Recovered/Not Resolved]
  - Dyspnoea [Recovered/Resolved]
  - Palpitations [Recovered/Resolved]
  - Anxiety [Recovered/Resolved]
  - Insomnia [Recovered/Resolved]
